FAERS Safety Report 20059537 (Version 1)
Quarter: 2021Q4

REPORT INFORMATION
  Report Type: Spontaneous
  Country: JP (occurrence: JP)
  Receive Date: 20211111
  Receipt Date: 20211111
  Transmission Date: 20220303
  Serious: Yes (Death, Hospitalization)
  Sender: FDA-Public Use
  Company Number: JP-BAYER-2021A240294

PATIENT
  Age: 62 Year
  Sex: Male

DRUGS (1)
  1. STIVARGA [Suspect]
     Active Substance: REGORAFENIB
     Indication: Colon cancer
     Dosage: 160 MG
     Route: 048
     Dates: start: 20211021

REACTIONS (3)
  - Death [Fatal]
  - Hospitalisation [None]
  - General physical health deterioration [None]

NARRATIVE: CASE EVENT DATE: 20211028
